FAERS Safety Report 4498777-2 (Version None)
Quarter: 2004Q4

REPORT INFORMATION
  Report Type: 
  Country: None (occurrence: None)
  Receive Date: 20041110
  Receipt Date: 20041110
  Transmission Date: 20050328
  Serious: Yes (Other)
  Sender: FDA-Public Use
  Company Number: None

PATIENT
  Sex: Male
  Weight: 72.5755 kg

DRUGS (2)
  1. NEURONTIN [Suspect]
     Indication: HYPOAESTHESIA
     Dosage: 2 X DAILY
     Dates: start: 20040301, end: 20041101
  2. NEURONTIN [Suspect]
     Indication: HYPOAESTHESIA
     Dosage: 2 X DAILY
     Dates: start: 20041102, end: 20041130

REACTIONS (1)
  - HYPOAESTHESIA [None]
